FAERS Safety Report 6707975-6 (Version None)
Quarter: 2010Q2

REPORT INFORMATION
  Report Type: 
  Country: None (occurrence: None)
  Receive Date: 20100503
  Receipt Date: 20100402
  Transmission Date: 20101027
  Serious: Yes (Death, Other)
  Sender: FDA-Public Use
  Company Number: US-BAXTER-2010BH002063

PATIENT
  Age: 1 Day
  Sex: Male

DRUGS (6)
  1. HEPARIN SODIUM INJECTION [Suspect]
     Indication: EXTRACORPOREAL MEMBRANE OXYGENATION
     Route: 042
     Dates: start: 20080125
  2. GENTAMICIN SULFATE [Concomitant]
     Indication: DRUG USE FOR UNKNOWN INDICATION
     Route: 065
     Dates: start: 20080124, end: 20080125
  3. AMPICILLIN [Concomitant]
     Indication: DRUG USE FOR UNKNOWN INDICATION
     Route: 065
     Dates: start: 20080124, end: 20080125
  4. SODIUM BICARBONATE [Concomitant]
     Indication: DRUG USE FOR UNKNOWN INDICATION
     Route: 065
  5. ZANTAC [Concomitant]
     Indication: DRUG USE FOR UNKNOWN INDICATION
     Route: 065
  6. POTASSIUM CHLORIDE [Concomitant]
     Indication: DRUG USE FOR UNKNOWN INDICATION
     Route: 065
     Dates: start: 20080125

REACTIONS (17)
  - ANGIOEDEMA [None]
  - BURNING SENSATION [None]
  - CARDIOPULMONARY FAILURE [None]
  - CHEST DISCOMFORT [None]
  - COAGULOPATHY [None]
  - CONGENITAL DIAPHRAGMATIC HERNIA [None]
  - FEELING HOT [None]
  - FLUSHING [None]
  - INFECTION [None]
  - METABOLIC ACIDOSIS [None]
  - OEDEMA MOUTH [None]
  - OEDEMA PERIPHERAL [None]
  - PHARYNGEAL OEDEMA [None]
  - RESPIRATORY ACIDOSIS [None]
  - SUPERIOR VENA CAVAL OCCLUSION [None]
  - SWELLING [None]
  - WHEEZING [None]
